FAERS Safety Report 10618993 (Version 1)
Quarter: 2014Q4

REPORT INFORMATION
  Report Type: Spontaneous
  Country: GB (occurrence: None)
  Receive Date: 20141126
  Receipt Date: 20141126
  Transmission Date: 20150529
  Serious: Yes (Hospitalization, Other)
  Sender: FDA-Public Use
  Company Number: ADR-2014-02224

PATIENT
  Age: 66 Year
  Sex: Male

DRUGS (9)
  1. COCODAMOL [Suspect]
     Active Substance: ACETAMINOPHEN\CODEINE PHOSPHATE
     Indication: PAIN
     Dosage: DAILY DOSAGE 30/500
     Route: 062
  2. TEMAZEPAM. [Concomitant]
     Active Substance: TEMAZEPAM
  3. CO-DANTHRAMER (DANTRON, POLOXAMER) [Concomitant]
  4. CITALOPRAM [Concomitant]
     Active Substance: CITALOPRAM HYDROBROMIDE
  5. RANITIDINE [Concomitant]
     Active Substance: RANITIDINE\RANITIDINE HYDROCHLORIDE
  6. BACLOFEN (BACLOFEN) [Suspect]
     Active Substance: BACLOFEN
     Dosage: UNK
     Dates: start: 20121223
  7. FINASTERIDE. [Concomitant]
     Active Substance: FINASTERIDE
  8. CANDESARTAN CILEXETIL. [Suspect]
     Active Substance: CANDESARTAN CILEXETIL
     Dosage: UNK
     Dates: end: 20121223
  9. AMLODIPINE [Concomitant]
     Active Substance: AMLODIPINE BESYLATE

REACTIONS (11)
  - Acute kidney injury [None]
  - Heart rate increased [None]
  - Malaise [None]
  - Escherichia test positive [None]
  - Somnolence [None]
  - Urinary tract infection [None]
  - Pyrexia [None]
  - Sepsis [None]
  - Blood sodium increased [None]
  - Carbon dioxide increased [None]
  - Blood glucose increased [None]

NARRATIVE: CASE EVENT DATE: 20121223
